FAERS Safety Report 17376116 (Version 1)
Quarter: 2020Q1

REPORT INFORMATION
  Report Type: Report from Study
  Country: US (occurrence: US)
  Receive Date: 20200206
  Receipt Date: 20200206
  Transmission Date: 20200409
  Serious: Yes (Other)
  Sender: FDA-Public Use
  Company Number: US-ROCHE-2536265

PATIENT
  Sex: Female

DRUGS (2)
  1. ACTEMRA [Suspect]
     Active Substance: TOCILIZUMAB
     Indication: RHEUMATOID ARTHRITIS
  2. ACTEMRA [Suspect]
     Active Substance: TOCILIZUMAB
     Indication: SJOGREN^S SYNDROME
     Dosage: INJECT 0.9ML (162MG) SUBCUTANEOUSLY ONCE EVERY MONTH
     Route: 058

REACTIONS (4)
  - Dizziness [Unknown]
  - Pyrexia [Unknown]
  - Feeling hot [Unknown]
  - Syncope [Unknown]
